FAERS Safety Report 5258671-6 (Version None)
Quarter: 2007Q1

REPORT INFORMATION
  Report Type: 
  Country: None (occurrence: None)
  Receive Date: 20070305
  Receipt Date: 20070221
  Transmission Date: 20070707
  Serious: Yes (Other)
  Sender: FDA-Public Use
  Company Number: 236963

PATIENT
  Sex: Male

DRUGS (2)
  1. MABTHERA(RITUXIMAB) CONC FOR SOLUTION FOR INFUSION [Suspect]
     Indication: SYSTEMIC LUPUS ERYTHEMATOSUS
  2. L-DOPA (LEVODOPA) [Concomitant]

REACTIONS (5)
  - BLOOD TEST ABNORMAL [None]
  - DIALYSIS [None]
  - NEURALGIA [None]
  - RENAL FAILURE [None]
  - RENAL TRANSPLANT [None]
